FAERS Safety Report 7617962-1 (Version None)
Quarter: 2011Q3

REPORT INFORMATION
  Report Type: 
  Country: None (occurrence: None)
  Receive Date: 20110718
  Receipt Date: 20110705
  Transmission Date: 20111222
  Serious: Yes (Other)
  Sender: FDA-Public Use
  Company Number: PHHY2011US50430

PATIENT
  Sex: Male

DRUGS (1)
  1. TASIGNA [Suspect]
     Dosage: 300 MG, BID
     Route: 048

REACTIONS (5)
  - PANCREATIC ENZYMES ABNORMAL [None]
  - ABASIA [None]
  - BLOOD AMYLASE INCREASED [None]
  - BLOOD COUNT ABNORMAL [None]
  - LIPASE INCREASED [None]
